FAERS Safety Report 4431905-3 (Version None)
Quarter: 2004Q3

REPORT INFORMATION
  Report Type: 
  Country: None (occurrence: None)
  Receive Date: 20040819
  Receipt Date: 20040806
  Transmission Date: 20050211
  Serious: Yes (Hospitalization)
  Sender: FDA-Public Use
  Company Number: 2004227356DE

PATIENT
  Age: 57 Year
  Sex: Female
  Weight: 107 kg

DRUGS (3)
  1. EPIRUBICIN [Suspect]
     Indication: BREAST CANCER
     Dosage: CYCLE 7, IV
     Route: 042
     Dates: start: 20040302, end: 20040504
  2. CYCLOPHOSPHAMIDE [Suspect]
     Indication: BREAST CANCER
     Dosage: CYCLE 7
     Dates: start: 20040302, end: 20040504
  3. COMPARATOR-DOCETAXEL (DOCETAXEL) INJECTION [Suspect]
     Indication: BREAST CANCER
     Dosage: CYCLE 7
     Dates: start: 20040526, end: 20040707

REACTIONS (1)
  - ARTERIAL THROMBOSIS LIMB [None]
